FAERS Safety Report 7602170-0 (Version None)
Quarter: 2011Q3

REPORT INFORMATION
  Report Type: 
  Country: None (occurrence: None)
  Receive Date: 20110711
  Receipt Date: 20110630
  Transmission Date: 20111222
  Serious: Yes (Other)
  Sender: FDA-Public Use
  Company Number: FR-ASTRAZENECA-2011SE28385

PATIENT
  Sex: Female

DRUGS (1)
  1. ARIMIDEX [Suspect]
     Indication: BREAST CANCER
     Route: 048
     Dates: start: 20040101, end: 20060601

REACTIONS (8)
  - BACK PAIN [None]
  - TENDONITIS [None]
  - MUSCLE SPASMS [None]
  - DEPRESSION [None]
  - FOOT DEFORMITY [None]
  - VISUAL ACUITY REDUCED [None]
  - MEMORY IMPAIRMENT [None]
  - SPINAL OSTEOARTHRITIS [None]
